FAERS Safety Report 20912161 (Version 1)
Quarter: 2022Q2

REPORT INFORMATION
  Report Type: Spontaneous
  Country: FR (occurrence: None)
  Receive Date: 20220603
  Receipt Date: 20220603
  Transmission Date: 20220721
  Serious: Yes (Hospitalization)
  Sender: FDA-Public Use
  Company Number: 2022A206987

PATIENT
  Age: 65 Year
  Sex: Female
  Weight: 60 kg

DRUGS (6)
  1. OMEPRAZOLE [Suspect]
     Active Substance: OMEPRAZOLE
     Dosage: 20.0MG UNKNOWN
     Route: 048
  2. ALFACALCIDOL [Suspect]
     Active Substance: ALFACALCIDOL
     Indication: Product used for unknown indication
     Dosage: LC1.25UG/INHAL UNKNOWN
     Route: 048
     Dates: end: 20220207
  3. CALCIUM [Suspect]
     Active Substance: CALCIUM
     Indication: Product used for unknown indication
     Dosage: LC
     Route: 048
     Dates: end: 20220207
  4. COVERAM [Suspect]
     Active Substance: AMLODIPINE\PERINDOPRIL
     Route: 048
     Dates: end: 20220207
  5. ALLOPURINOL [Suspect]
     Active Substance: ALLOPURINOL
     Route: 048
  6. ESIDREX [Suspect]
     Active Substance: HYDROCHLOROTHIAZIDE
     Route: 048

REACTIONS (3)
  - Nephropathy [Recovering/Resolving]
  - Hypercalcaemia [Recovered/Resolved]
  - Urinary tract infection [Unknown]

NARRATIVE: CASE EVENT DATE: 20210101
